FAERS Safety Report 4727797-5 (Version None)
Quarter: 2005Q3

REPORT INFORMATION
  Report Type: 
  Country: None (occurrence: None)
  Receive Date: 20050728
  Receipt Date: 20050725
  Transmission Date: 20060218
  Serious: Yes (Hospitalization)
  Sender: FDA-Public Use
  Company Number: FR-MERCK-0507FRA00081

PATIENT
  Age: 69 Year
  Sex: Female
  Weight: 60 kg

DRUGS (4)
  1. FOSAMAX [Suspect]
     Indication: OSTEOPOROSIS
     Route: 048
  2. DONEPEZIL HYDROCHLORIDE [Suspect]
     Route: 048
     Dates: start: 20050301, end: 20050430
  3. CARBAMAZEPINE [Concomitant]
     Route: 048
  4. ISRADIPINE [Concomitant]
     Route: 048

REACTIONS (2)
  - LICHENOID KERATOSIS [None]
  - TOXIC SKIN ERUPTION [None]
